FAERS Safety Report 25858179 (Version 1)
Quarter: 2025Q3

REPORT INFORMATION
  Report Type: Spontaneous
  Country: EU (occurrence: EU)
  Receive Date: 20250929
  Receipt Date: 20250929
  Transmission Date: 20251021
  Serious: Yes (Other)
  Sender: BAYER HEALTHCARE PHARMACEUTICALS INC.
  Company Number: EU-BAYER-2025A124420

PATIENT
  Age: 57 Year
  Weight: 30.51 kg

DRUGS (5)
  1. KERENDIA [Suspect]
     Active Substance: FINERENONE
  2. OZEMPIC [Concomitant]
     Active Substance: SEMAGLUTIDE
  3. SYNJARDY [Concomitant]
     Active Substance: EMPAGLIFLOZIN\METFORMIN HYDROCHLORIDE
  4. AMLODIPINE BESYLATE\PERINDOPRIL ERBUMINE [Concomitant]
     Active Substance: AMLODIPINE BESYLATE\PERINDOPRIL ERBUMINE
  5. ATORVASTATIN CALCIUM [Concomitant]
     Active Substance: ATORVASTATIN CALCIUM

REACTIONS (2)
  - Glycosylated haemoglobin increased [None]
  - Glomerular filtration rate decreased [None]
